FAERS Safety Report 5143819-4 (Version None)
Quarter: 2006Q4

REPORT INFORMATION
  Report Type: 
  Country: None (occurrence: None)
  Receive Date: 20061106
  Receipt Date: 20061025
  Transmission Date: 20070319
  Serious: Yes (Death, Hospitalization)
  Sender: FDA-Public Use
  Company Number: FR-JNJFOC-20060803682

PATIENT
  Sex: Male

DRUGS (4)
  1. ACETAMINOPHEN AND TRAMADOL HCL [Suspect]
     Route: 048
  2. ACETAMINOPHEN AND TRAMADOL HCL [Suspect]
     Indication: TOOTHACHE
     Route: 048
  3. SOLIAN [Suspect]
     Route: 048
  4. SOLIAN [Suspect]
     Indication: SCHIZOPHRENIA
     Route: 048

REACTIONS (9)
  - ARRHYTHMIA [None]
  - HAEMODIALYSIS [None]
  - LUNG DISORDER [None]
  - MULTI-ORGAN FAILURE [None]
  - PSEUDOMONAS INFECTION [None]
  - RESPIRATORY DISORDER [None]
  - SEPTIC SHOCK [None]
  - TOXIC EPIDERMAL NECROLYSIS [None]
  - VASCULITIS [None]
